FAERS Safety Report 7364563-9 (Version None)
Quarter: 2011Q1

REPORT INFORMATION
  Report Type: 
  Country: None (occurrence: None)
  Receive Date: 20110321
  Receipt Date: 20110310
  Transmission Date: 20110831
  Serious: Yes (Hospitalization)
  Sender: FDA-Public Use
  Company Number: AT-ASTRAZENECA-2011SE13690

PATIENT
  Age: 50 Year
  Sex: Female

DRUGS (1)
  1. ASCOTOP [Suspect]
     Route: 048

REACTIONS (3)
  - ISCHAEMIA [None]
  - CORONARY ARTERY DISEASE [None]
  - CHEST DISCOMFORT [None]
